FAERS Safety Report 6212505-1 (Version None)
Quarter: 2009Q2

REPORT INFORMATION
  Report Type: 
  Country: None (occurrence: None)
  Receive Date: 20090603
  Receipt Date: 20090528
  Transmission Date: 20091009
  Serious: Yes (Hospitalization, Other)
  Sender: FDA-Public Use
  Company Number: US-BIOGENIDEC-2009BI010879

PATIENT
  Sex: Female

DRUGS (3)
  1. AVONEX [Suspect]
     Indication: MULTIPLE SCLEROSIS
     Route: 030
     Dates: start: 20090320
  2. IMITREX [Concomitant]
     Indication: MIGRAINE
  3. PROZAC [Concomitant]
     Indication: DRUG USE FOR UNKNOWN INDICATION

REACTIONS (7)
  - ALOPECIA [None]
  - AMNESIA [None]
  - GRAND MAL CONVULSION [None]
  - INTENTIONAL SELF-INJURY [None]
  - SKIN MASS [None]
  - STOMATITIS [None]
  - SUICIDE ATTEMPT [None]
